FAERS Safety Report 7358627-3 (Version None)
Quarter: 2011Q1

REPORT INFORMATION
  Report Type: 
  Country: None (occurrence: None)
  Receive Date: 20110317
  Receipt Date: 20110309
  Transmission Date: 20110831
  Serious: Yes (Other)
  Sender: FDA-Public Use
  Company Number: ES-JNJFOC-20110304993

PATIENT
  Sex: Female
  Weight: 50 kg

DRUGS (2)
  1. ESBERIVEN [Concomitant]
     Indication: FATIGUE
     Route: 065
  2. ORTHO EVRA [Suspect]
     Indication: CONTRACEPTION
     Route: 062

REACTIONS (5)
  - MALAISE [None]
  - EPILEPSY [None]
  - ANGER [None]
  - TREATMENT NONCOMPLIANCE [None]
  - OEDEMA PERIPHERAL [None]
